FAERS Safety Report 10070564 (Version 1)
Quarter: 2014Q2

REPORT INFORMATION
  Report Type: Spontaneous
  Country: US (occurrence: None)
  Receive Date: 20140408
  Receipt Date: 20140408
  Transmission Date: 20141212
  Serious: Yes (Hospitalization, Other)
  Sender: FDA-Public Use
  Company Number: AUR-APL-2014-04014

PATIENT
  Age: 52 Year
  Sex: Female

DRUGS (3)
  1. HYDROCHLOROTHIAZIDE (HYDROCHLOROTHIAZIDE) [Suspect]
     Indication: HYPERTENSION
     Dosage: 25 MG, 1IN 1 D
  2. LISINOPRIL (LISINOPRIL) [Concomitant]
  3. METOPROLOL (METOPROLOL) [Concomitant]

REACTIONS (5)
  - Dizziness postural [None]
  - Diarrhoea [None]
  - Dehydration [None]
  - Dizziness [None]
  - Syncope [None]
